FAERS Safety Report 4955050-3 (Version None)
Quarter: 2006Q1

REPORT INFORMATION
  Report Type: 
  Country: None (occurrence: None)
  Receive Date: 20060322
  Receipt Date: 20060302
  Transmission Date: 20060701
  Serious: Yes (Other)
  Sender: FDA-Public Use
  Company Number: US200603001500

PATIENT
  Age: 61 Year
  Sex: Female

DRUGS (2)
  1. CYMBALTA [Suspect]
     Dosage: 30 MG; 60 MG
     Dates: start: 20060101
  2. ADIPEX [Concomitant]

REACTIONS (1)
  - HEPATIC ENZYME INCREASED [None]
